FAERS Safety Report 5578788-6 (Version None)
Quarter: 2007Q4

REPORT INFORMATION
  Report Type: 
  Country: None (occurrence: None)
  Receive Date: 20071228
  Receipt Date: 20071228
  Transmission Date: 20080405
  Serious: Yes (Hospitalization)
  Sender: FDA-Public Use
  Company Number: None

PATIENT
  Age: 64 Year
  Sex: Male

DRUGS (1)
  1. DEMECLOCYCLINE HCL [Suspect]
     Dates: start: 20071001

REACTIONS (2)
  - NAUSEA [None]
  - VOMITING [None]
